FAERS Safety Report 11416023 (Version 1)
Quarter: 2015Q3

REPORT INFORMATION
  Report Type: Spontaneous
  Country: US (occurrence: US)
  Receive Date: 20150825
  Receipt Date: 20150825
  Transmission Date: 20151125
  Serious: No
  Sender: FDA-Public Use
  Company Number: US-TEVA-514761USA

PATIENT
  Age: 78 Year
  Sex: Female

DRUGS (3)
  1. QVAR (BECLOMETASONE DIPROPIONATE) [Concomitant]
     Dates: start: 2013
  2. FEXOFENADINE [Suspect]
     Active Substance: FEXOFENADINE\FEXOFENADINE HYDROCHLORIDE
     Route: 048
     Dates: start: 20141006, end: 20141006
  3. LEVOTHYROXINE. [Concomitant]
     Active Substance: LEVOTHYROXINE
     Dates: start: 1984

REACTIONS (2)
  - Drug administered to patient of inappropriate age [Recovered/Resolved]
  - Restlessness [Recovered/Resolved]

NARRATIVE: CASE EVENT DATE: 20141006
